FAERS Safety Report 6462820-1 (Version None)
Quarter: 2009Q4

REPORT INFORMATION
  Report Type: 
  Country: None (occurrence: None)
  Receive Date: 20091130
  Receipt Date: 20091120
  Transmission Date: 20100525
  Serious: Yes (Hospitalization)
  Sender: FDA-Public Use
  Company Number: DE-WYE-G04471109

PATIENT
  Sex: Male

DRUGS (3)
  1. TREVILOR RETARD [Suspect]
     Dosage: 75 MG, FREQUENCY UNKNOWN
     Route: 048
     Dates: start: 20070101, end: 20090101
  2. TREVILOR RETARD [Suspect]
     Dosage: 75 MG, FREQUENCY UNKNOWN
     Route: 048
     Dates: start: 20090901, end: 20090101
  3. TREVILOR RETARD [Suspect]
     Dosage: 75 MG, FREQUENCY UNKNOWN
     Route: 048
     Dates: start: 20090101

REACTIONS (5)
  - BLADDER DISORDER [None]
  - CONDITION AGGRAVATED [None]
  - INTENTIONAL DRUG MISUSE [None]
  - POST PROCEDURAL HAEMORRHAGE [None]
  - PROSTATIC DISORDER [None]
